FAERS Safety Report 7176797-7 (Version None)
Quarter: 2010Q4

REPORT INFORMATION
  Report Type: 
  Country: None (occurrence: None)
  Receive Date: 20101207
  Receipt Date: 20101201
  Transmission Date: 20110411
  Serious: Yes (Other)
  Sender: FDA-Public Use
  Company Number: 2010006237

PATIENT
  Age: 65 Year
  Sex: Male
  Weight: 79.3795 kg

DRUGS (10)
  1. ACTIQ [Suspect]
     Indication: NECK PAIN
     Dosage: 400 MCG (200 MCG,2 IN 1 D),BU
     Route: 002
     Dates: start: 20050101
  2. DURAGESIC-50 [Concomitant]
  3. SAVELLA [Concomitant]
  4. PROSCAR [Concomitant]
  5. FLOMAX [Concomitant]
  6. CELEBREX [Concomitant]
  7. LYRICA [Concomitant]
  8. XANAX [Concomitant]
  9. TRAMADOL [Concomitant]
  10. AMBIEN CR [Concomitant]

REACTIONS (3)
  - DRY MOUTH [None]
  - DYSPNOEA [None]
  - MIDDLE INSOMNIA [None]
